FAERS Safety Report 17852168 (Version 1)
Quarter: 2020Q2

REPORT INFORMATION
  Report Type: Spontaneous
  Country: FR (occurrence: FR)
  Receive Date: 20200602
  Receipt Date: 20200602
  Transmission Date: 20200714
  Serious: Yes (Other)
  Sender: FDA-Public Use
  Company Number: FR-JNJFOC-20200529668

PATIENT
  Age: 40 Year
  Sex: Female
  Weight: 67 kg

DRUGS (6)
  1. REMICADE [Suspect]
     Active Substance: INFLIXIMAB
     Indication: ANKYLOSING SPONDYLITIS
     Route: 042
     Dates: start: 20191101
  2. IZALGI [Suspect]
     Active Substance: ACETAMINOPHEN\OPIUM
     Indication: PAIN
     Dosage: 500 MG/25 MG
     Route: 048
     Dates: start: 20191029, end: 20191206
  3. CIMZIA [Suspect]
     Active Substance: CERTOLIZUMAB PEGOL
     Indication: ANKYLOSING SPONDYLITIS
     Route: 058
     Dates: start: 20190607
  4. LAMALINE                           /00764901/ [Suspect]
     Active Substance: ACETAMINOPHEN\BELLADONNA LEAF\CAFFEINE\OPIUM
     Indication: PAIN
     Route: 048
     Dates: start: 20191029, end: 20191206
  5. CARDENSIEL [Suspect]
     Active Substance: BISOPROLOL FUMARATE
     Indication: CARDIAC FAILURE
     Dosage: 2,5 MG
     Route: 048
     Dates: start: 20190222, end: 20191104
  6. LEXOMIL [Suspect]
     Active Substance: BROMAZEPAM
     Indication: PRODUCT USED FOR UNKNOWN INDICATION
     Route: 048
     Dates: start: 20191019, end: 20191104

REACTIONS (2)
  - Arrhythmia [Not Recovered/Not Resolved]
  - Angina pectoris [Not Recovered/Not Resolved]

NARRATIVE: CASE EVENT DATE: 20191104
